FAERS Safety Report 20974299 (Version 1)
Quarter: 2022Q2

REPORT INFORMATION
  Report Type: Spontaneous
  Country: US (occurrence: US)
  Receive Date: 20220617
  Receipt Date: 20220617
  Transmission Date: 20220721
  Serious: Yes (Hospitalization, Other)
  Sender: FDA-Public Use
  Company Number: US-Accord-266018

PATIENT
  Age: 63 Year
  Sex: Female

DRUGS (1)
  1. TACROLIMUS [Suspect]
     Active Substance: TACROLIMUS
     Indication: Immunosuppression

REACTIONS (3)
  - Shunt infection [Recovered/Resolved]
  - Escherichia bacteraemia [Recovered/Resolved]
  - Septic embolus [Recovered/Resolved]
